FAERS Safety Report 25979675 (Version 1)
Quarter: 2025Q4

REPORT INFORMATION
  Report Type: Report from Study
  Country: US (occurrence: US)
  Receive Date: 20251030
  Receipt Date: 20251030
  Transmission Date: 20260117
  Serious: Yes (Other)
  Sender: ABBVIE
  Company Number: US-ABBVIE-6520937

PATIENT
  Age: 71 Year
  Sex: Male

DRUGS (1)
  1. SKYRIZI [Suspect]
     Active Substance: RISANKIZUMAB-RZAA
     Indication: Crohn^s disease
     Route: 058
     Dates: start: 20230706

REACTIONS (4)
  - Prostate cancer [Unknown]
  - Urinary retention [Unknown]
  - Haematochezia [Unknown]
  - Dyschezia [Unknown]

NARRATIVE: CASE EVENT DATE: 20251013
